FAERS Safety Report 8621014-1 (Version None)
Quarter: 2012Q3

REPORT INFORMATION
  Report Type: 
  Country: None (occurrence: None)
  Receive Date: 20120824
  Receipt Date: 20120810
  Transmission Date: 20120928
  Serious: Yes (Hospitalization, Other)
  Sender: FDA-Public Use
  Company Number: GB-VERTEX PHARMACEUTICAL INC.-000000000000000963

PATIENT
  Sex: Male
  Weight: 114 kg

DRUGS (5)
  1. ATENOLOL [Concomitant]
     Indication: PRODUCT USED FOR UNKNOWN INDICATION
     Dosage: 50 MG, QD
  2. INCIVEK [Suspect]
     Indication: HEPATITIS C
     Dosage: 750 MG, QD
     Route: 048
     Dates: start: 20120615
  3. RIBAVIRIN [Concomitant]
     Indication: HEPATITIS C
     Dosage: 600 MG, QD
     Route: 065
     Dates: start: 20120615
  4. ATENOLOL [Concomitant]
     Dosage: DOSAGE FORM: UNSPECIFIED
     Route: 048
  5. PEG-INTRON [Concomitant]
     Indication: HEPATITIS C
     Dosage: DOSAGE FORM: INJECTION: 1 DOSE ONCE A WEEK
     Route: 058
     Dates: start: 20120615

REACTIONS (2)
  - ANAL PRURITUS [None]
  - RETINAL DETACHMENT [None]
